FAERS Safety Report 7512191-4 (Version None)
Quarter: 2011Q2

REPORT INFORMATION
  Report Type: 
  Country: None (occurrence: None)
  Receive Date: 20110531
  Receipt Date: 20110525
  Transmission Date: 20111010
  Serious: Yes (Death, Other)
  Sender: FDA-Public Use
  Company Number: TW-PFIZER INC-2011115677

PATIENT

DRUGS (1)
  1. NORVASC [Suspect]
     Dosage: 5 MG, A DAY
     Route: 048

REACTIONS (4)
  - GASTROINTESTINAL HAEMORRHAGE [None]
  - DYSPNOEA [None]
  - DEATH [None]
  - RESPIRATORY FAILURE [None]
